FAERS Safety Report 10526966 (Version 3)
Quarter: 2015Q1

REPORT INFORMATION
  Report Type: Report from Study
  Country: TR (occurrence: TR)
  Receive Date: 20141020
  Receipt Date: 20150102
  Transmission Date: 20150720
  Serious: Yes (Other)
  Sender: FDA-Public Use
  Company Number: TR-ROCHE-1473741

PATIENT

DRUGS (6)
  1. CAPECITABINE. [Suspect]
     Active Substance: CAPECITABINE
     Indication: COLORECTAL CANCER METASTATIC
     Dosage: 1 - 14 DAYS OF EACH CYCLE, EVERY 21 DAYS
     Route: 065
  2. IRINOTECAN [Suspect]
     Active Substance: IRINOTECAN
     Indication: COLORECTAL CANCER METASTATIC
     Route: 065
  3. BEVACIZUMAB [Suspect]
     Active Substance: BEVACIZUMAB
     Dosage: MAINTENANCE DOSE
     Route: 065
  4. FLUOROURACIL. [Suspect]
     Active Substance: FLUOROURACIL
     Indication: COLORECTAL CANCER METASTATIC
     Route: 065
  5. BEVACIZUMAB [Suspect]
     Active Substance: BEVACIZUMAB
     Indication: COLORECTAL CANCER METASTATIC
     Dosage: INDUCTION DOSE
     Route: 065
  6. FOLINIC ACID [Suspect]
     Active Substance: LEUCOVORIN
     Indication: COLORECTAL CANCER METASTATIC
     Route: 065

REACTIONS (9)
  - Diarrhoea [Unknown]
  - Deep vein thrombosis [Unknown]
  - Neutropenia [Unknown]
  - Cerebrovascular disorder [Unknown]
  - Palmar-plantar erythrodysaesthesia syndrome [Unknown]
  - Hypertension [Unknown]
  - Rectal haemorrhage [Unknown]
  - Fatigue [Unknown]
  - Epistaxis [Unknown]
